FAERS Safety Report 7068624-3 (Version None)
Quarter: 2010Q4

REPORT INFORMATION
  Report Type: 
  Country: None (occurrence: None)
  Receive Date: 20101027
  Receipt Date: 20101027
  Transmission Date: 20110411
  Serious: No
  Sender: FDA-Public Use
  Company Number: None

PATIENT
  Age: 64 Year
  Sex: Female
  Weight: 101.1521 kg

DRUGS (1)
  1. ROZEREM [Suspect]
     Indication: INSOMNIA
     Dosage: 8 MG 1 AT BEDTIME PO
     Route: 048
     Dates: start: 20101023, end: 20101024

REACTIONS (2)
  - ABNORMAL DREAMS [None]
  - HALLUCINATION [None]
